FAERS Safety Report 23774382 (Version 1)
Quarter: 2024Q2

REPORT INFORMATION
  Report Type: Spontaneous
  Country: NO (occurrence: NO)
  Receive Date: 20240423
  Receipt Date: 20240423
  Transmission Date: 20240716
  Serious: Yes (Hospitalization)
  Sender: FDA-Public Use
  Company Number: None

PATIENT
  Age: 52 Year
  Sex: Female

DRUGS (5)
  1. SCOPOLAMINE [Suspect]
     Active Substance: SCOPOLAMINE
     Indication: Motion sickness
     Dosage: 1 MG EVERY 72 HRS, DOSAGE TEXT: NEW PATCH EVERY 72 HOURS. IN TOTAL: 4 PATCHES, 11 DAYS, ADDITIONAL I
     Route: 062
     Dates: start: 20240302, end: 20240313
  2. AMLODIPINE [Concomitant]
     Active Substance: AMLODIPINE BESYLATE
     Dosage: 5 MG (MILLIGRAM), ADDITIONAL INFORMATION OF DRUG: C08CA01 - AMLODIPIN
     Route: 065
  3. ARCOXIA [Concomitant]
     Active Substance: ETORICOXIB
     Dosage: 90 MG (MILLIGRAM), ADDITIONAL INFORMATION OF DRUG: M01AH05 - ETORIKOKSIB
     Route: 065
  4. CRESTOR [Concomitant]
     Active Substance: ROSUVASTATIN CALCIUM
     Dosage: 10MG (MILLIGRAM), ADDITIONAL INFORMATION OF DRUG: C10AA07 - ROSUVASTATIN
     Route: 065
  5. METFORMIN [Concomitant]
     Active Substance: METFORMIN HYDROCHLORIDE
     Dosage: ADDITIONAL INFORMATION ON DRUG: A10BA02 - METFORMIN
     Route: 065

REACTIONS (5)
  - Balance disorder [Recovered/Resolved with Sequelae]
  - Withdrawal syndrome [Recovered/Resolved with Sequelae]
  - Dizziness [Recovered/Resolved with Sequelae]
  - Nausea [Recovered/Resolved with Sequelae]
  - Vomiting [Recovered/Resolved with Sequelae]

NARRATIVE: CASE EVENT DATE: 20240314
